FAERS Safety Report 13413819 (Version 1)
Quarter: 2017Q2

REPORT INFORMATION
  Report Type: Spontaneous
  Country: US (occurrence: US)
  Receive Date: 20170407
  Receipt Date: 20170407
  Transmission Date: 20170830
  Serious: No
  Sender: FDA-Public Use
  Company Number: None

PATIENT

DRUGS (3)
  1. DEXTROAMPHETAMINE SULFATE DEXTROAMPHETAMINE [Suspect]
     Active Substance: DEXTROAMPHETAMINE SULFATE
     Route: 048
  2. ADDERALL XR [Suspect]
     Active Substance: AMPHETAMINE ASPARTATE\AMPHETAMINE SULFATE\DEXTROAMPHETAMINE SACCHARATE\DEXTROAMPHETAMINE SULFATE
     Route: 048
  3. DEXEDRINE SPANSULE [Suspect]
     Active Substance: DEXTROAMPHETAMINE SULFATE
     Route: 048

REACTIONS (3)
  - Wrong drug administered [None]
  - Product name confusion [None]
  - Drug dispensing error [None]

NARRATIVE: CASE EVENT DATE: 2017
